FAERS Safety Report 9522730 (Version 1)
Quarter: 2013Q1

REPORT INFORMATION
  Report Type: Spontaneous
  Country: US (occurrence: None)
  Receive Date: 20130305
  Receipt Date: 20130305
  Transmission Date: 20140127
  Serious: Yes (Other)
  Sender: FDA-Public Use
  Company Number: 163-21880-12070611

PATIENT
  Age: 62 Year
  Sex: Female
  Weight: 55.79 kg

DRUGS (2)
  1. REVLIMID (LENALIDOMIDE) (CAPSULES) [Suspect]
     Indication: PLASMA CELL MYELOMA
     Route: 048
     Dates: start: 20120608, end: 20120703
  2. VELCADE (BORTEZOMIB) [Concomitant]

REACTIONS (1)
  - Dermatitis bullous [None]
